FAERS Safety Report 9769663 (Version 1)
Quarter: 2013Q4

REPORT INFORMATION
  Report Type: Spontaneous
  Country: US (occurrence: US)
  Receive Date: 20131218
  Receipt Date: 20131218
  Transmission Date: 20140711
  Serious: No
  Sender: FDA-Public Use
  Company Number: US-VERTEX PHARMACEUTICALS INC-AE-2011-000372

PATIENT
  Age: 64 Year
  Sex: Female
  Weight: 85 kg

DRUGS (3)
  1. INCIVEK [Suspect]
     Indication: HEPATITIS C
     Dates: start: 20110615
  2. RIBAVIRIN [Concomitant]
     Indication: HEPATITIS C
     Dates: start: 20110615
  3. INTERFERON [Concomitant]
     Indication: HEPATITIS C
     Dates: start: 20110615

REACTIONS (6)
  - Anal ulcer [Not Recovered/Not Resolved]
  - Fungal infection [Not Recovered/Not Resolved]
  - Anal fissure [Not Recovered/Not Resolved]
  - Proctalgia [Not Recovered/Not Resolved]
  - Rash [Not Recovered/Not Resolved]
  - Frequent bowel movements [Not Recovered/Not Resolved]
